FAERS Safety Report 9345473 (Version 1)
Quarter: 2013Q2

REPORT INFORMATION
  Report Type: Report from Study
  Country: FR (occurrence: FR)
  Receive Date: 20130613
  Receipt Date: 20130613
  Transmission Date: 20140414
  Serious: Yes (Death, Hospitalization)
  Sender: FDA-Public Use
  Company Number: FR-ROCHE-1232194

PATIENT
  Age: 62 Year
  Sex: Male
  Weight: 80 kg

DRUGS (8)
  1. RITUXIMAB [Suspect]
     Indication: MANTLE CELL LYMPHOMA
     Route: 042
     Dates: start: 20101220
  2. RITUXIMAB [Suspect]
     Route: 042
     Dates: start: 20110113
  3. CISPLATIN [Suspect]
     Indication: MANTLE CELL LYMPHOMA
     Route: 042
     Dates: start: 20101215
  4. CISPLATIN [Suspect]
     Route: 042
     Dates: start: 20110113
  5. ARACYTINE [Suspect]
     Indication: MANTLE CELL LYMPHOMA
     Route: 042
     Dates: start: 20101214, end: 20101215
  6. ARACYTINE [Suspect]
     Route: 042
     Dates: start: 20110113, end: 20110114
  7. DEXAMETHASONE [Suspect]
     Indication: MANTLE CELL LYMPHOMA
     Route: 042
     Dates: start: 20101214, end: 20101217
  8. DEXAMETHASONE [Suspect]
     Route: 042
     Dates: start: 20110113, end: 20110116

REACTIONS (9)
  - Pulmonary embolism [Fatal]
  - Renal failure [Not Recovered/Not Resolved]
  - Hyperkalaemia [Not Recovered/Not Resolved]
  - Hyperphosphataemia [Not Recovered/Not Resolved]
  - Candida sepsis [Not Recovered/Not Resolved]
  - Leukopenia [Not Recovered/Not Resolved]
  - Neutropenia [Not Recovered/Not Resolved]
  - Tumour lysis syndrome [Not Recovered/Not Resolved]
  - Malignant pleural effusion [Not Recovered/Not Resolved]
